FAERS Safety Report 17644977 (Version 1)
Quarter: 2020Q2

REPORT INFORMATION
  Report Type: Spontaneous
  Country: US (occurrence: US)
  Receive Date: 20200408
  Receipt Date: 20200408
  Transmission Date: 20200713
  Serious: No
  Sender: FDA-Public Use
  Company Number: None

PATIENT
  Age: 86 Year
  Sex: Male
  Weight: 63.45 kg

DRUGS (12)
  1. DEXAMETHASONE 4MG [Concomitant]
     Active Substance: DEXAMETHASONE
  2. CAPECITABINE. [Suspect]
     Active Substance: CAPECITABINE
  3. ONDANSETRON 8MG [Concomitant]
     Active Substance: ONDANSETRON
  4. FINASTERIDE 5MG [Concomitant]
     Active Substance: FINASTERIDE
  5. VITAMIN D [Concomitant]
     Active Substance: VITAMIN D NOS
  6. DONEPEZIL 5MG [Concomitant]
     Active Substance: DONEPEZIL
  7. SIMVASTATIN 20MG [Concomitant]
     Active Substance: SIMVASTATIN
  8. TELMISARTAN 80MG [Concomitant]
  9. ELIQUIS [Concomitant]
     Active Substance: APIXABAN
  10. FERROUS GLUC [Concomitant]
  11. LEVOTHYROXINE 125MCG [Concomitant]
     Active Substance: LEVOTHYROXINE SODIUM
  12. MEMANTINE. [Concomitant]
     Active Substance: MEMANTINE

REACTIONS (1)
  - Rash [None]

NARRATIVE: CASE EVENT DATE: 20200408
